FAERS Safety Report 16867127 (Version 2)
Quarter: 2019Q4

REPORT INFORMATION
  Report Type: Spontaneous
  Country: CH (occurrence: CH)
  Receive Date: 20190930
  Receipt Date: 20191218
  Transmission Date: 20200122
  Serious: Yes (Life-Threatening, Hospitalization)
  Sender: FDA-Public Use
  Company Number: CH-FERRINGPH-2019FE06176

PATIENT
  Age: 81 Year
  Sex: Male
  Weight: 76 kg

DRUGS (1)
  1. FIRMAGON [Suspect]
     Active Substance: DEGARELIX ACETATE
     Indication: PROSTATE CANCER METASTATIC
     Dosage: 80 MG, ONCE/SINGLE
     Route: 058

REACTIONS (8)
  - Circulatory collapse [Unknown]
  - Injection site warmth [Unknown]
  - Anaphylactic shock [Unknown]
  - Injection site induration [Unknown]
  - Erythema [Unknown]
  - Rib fracture [Unknown]
  - Lip swelling [Unknown]
  - Injection site erythema [Unknown]

NARRATIVE: CASE EVENT DATE: 20190918
